FAERS Safety Report 10494722 (Version 1)
Quarter: 2014Q4

REPORT INFORMATION
  Report Type: Spontaneous
  Country: JP (occurrence: JP)
  Receive Date: 20141003
  Receipt Date: 20141003
  Transmission Date: 20150528
  Serious: Yes (Other)
  Sender: FDA-Public Use
  Company Number: JP-JNJFOC-20140925780

PATIENT
  Age: 74 Year
  Sex: Male

DRUGS (2)
  1. RIUP 1% [Suspect]
     Active Substance: MINOXIDIL
     Route: 061
  2. RIUP 1% [Suspect]
     Active Substance: MINOXIDIL
     Indication: ALOPECIA
     Dosage: THERAPY DURATION: 4 TO 5 YEARS
     Route: 061

REACTIONS (2)
  - Glaucoma [Recovered/Resolved]
  - Cataract [Recovered/Resolved]
